FAERS Safety Report 8422549-7 (Version None)
Quarter: 2012Q2

REPORT INFORMATION
  Report Type: 
  Country: None (occurrence: None)
  Receive Date: 20120608
  Receipt Date: 20120605
  Transmission Date: 20120825
  Serious: Yes (Death, Hospitalization, Other)
  Sender: FDA-Public Use
  Company Number: US-ASTRAZENECA-2011SE41545

PATIENT
  Age: 61 Year
  Sex: Female

DRUGS (73)
  1. NEXIUM [Suspect]
     Route: 048
     Dates: start: 20060104
  2. XANAX [Concomitant]
     Dosage: 5MG 1/2 TAB QPM
     Route: 048
     Dates: start: 20060104
  3. ALLOPREERINOL [Concomitant]
     Indication: GOUT
  4. CARISOPRODOL [Concomitant]
  5. CEFPROZIL [Concomitant]
  6. WARFARIN SODIUM [Concomitant]
  7. COZZAAR [Concomitant]
  8. HYDROCOONE/APAP [Concomitant]
     Indication: PAIN
     Dosage: 7.5/750
  9. LEVAQUIN [Concomitant]
     Dates: start: 20030606
  10. TOPROL-XL [Concomitant]
     Dates: start: 20060104
  11. ZAROXOLYN [Concomitant]
     Dates: start: 20060104
  12. NEXIUM [Suspect]
     Indication: ABDOMINAL PAIN UPPER
     Route: 048
  13. NEXIUM [Suspect]
     Route: 048
     Dates: start: 20030522
  14. NEXIUM [Suspect]
     Route: 048
     Dates: start: 20060104
  15. LOOASTATIN [Concomitant]
  16. PLAUIX [Concomitant]
     Indication: APOLIPOPROTEIN ABNORMAL
  17. AMITRIPTYLINE HCL [Concomitant]
  18. AVANDIA [Concomitant]
     Dates: start: 20030620
  19. RANITIDINE [Concomitant]
     Dates: start: 20090401, end: 20110901
  20. METOLAZONE [Concomitant]
     Dates: start: 20030424
  21. CARISOPRODOL [Concomitant]
     Dates: start: 20030620
  22. GLIMEPIRIDE [Concomitant]
  23. SPIRONOLACTONE [Concomitant]
     Dates: start: 20030423
  24. NEURONTIN [Concomitant]
     Dates: start: 20060104
  25. PROMETHAZINE [Concomitant]
  26. CELEBREX [Concomitant]
     Dates: start: 20030618
  27. AVAPRO [Concomitant]
     Dates: start: 20110112
  28. POTASSIUM CL [Concomitant]
  29. XANAX [Concomitant]
  30. XANAX [Concomitant]
     Dates: start: 20030620
  31. RAZADYNE [Concomitant]
     Indication: MEMORY IMPAIRMENT
  32. ISOSORBIDE MONONITRATE [Concomitant]
  33. EUISTA [Concomitant]
     Indication: MENOPAUSE
  34. AZITHORMYCIN [Concomitant]
  35. FUROSEMIDE [Concomitant]
  36. PRAUASTATIN SODIUM [Concomitant]
  37. SPIRONOLACTONE [Concomitant]
  38. ZOCOR [Concomitant]
     Dates: start: 20060104
  39. COLCHICINE [Concomitant]
     Dosage: 0.6 MG PRN
     Dates: start: 20060104
  40. CENTRUM VITAMIN [Concomitant]
     Dates: start: 20070119
  41. NEXIUM [Suspect]
     Route: 048
     Dates: start: 20030522
  42. HYZAAR [Concomitant]
     Dosage: 50 / 12.5 MG QD
     Dates: start: 20060104
  43. RAZADYNE [Concomitant]
     Dates: start: 20060104
  44. ENALAPRIL MALEATE [Concomitant]
  45. CORG [Concomitant]
  46. TEMAZEPAM [Concomitant]
  47. NITROSTAT [Concomitant]
     Dosage: 0.4 MG PRN
     Dates: start: 20070119
  48. NEXIUM [Suspect]
     Indication: GASTROOESOPHAGEAL REFLUX DISEASE
     Route: 048
  49. HYZAAR [Concomitant]
     Dosage: 50-12.5MG
     Dates: start: 20030423
  50. PLAUIX [Concomitant]
     Indication: CARDIAC DISORDER
  51. NITROGLYCERIN [Concomitant]
     Indication: CARDIAC DISORDER
     Dates: start: 20030520
  52. AMBIEN [Concomitant]
     Indication: SLEEP DISORDER
  53. PREDNISONE TAB [Concomitant]
  54. SPIRIUA [Concomitant]
     Dosage: 18 MCG
  55. CEFADROXIL [Concomitant]
  56. AMIODARONE HCL [Concomitant]
  57. ALTACE [Concomitant]
  58. CLINDAMYCIN HCL [Concomitant]
  59. ASPIRIN [Concomitant]
     Dates: start: 20060104
  60. COREG [Concomitant]
     Dates: start: 20110112
  61. TORSEMIDE [Concomitant]
     Dates: start: 20070119
  62. ZAROXOLYN [Concomitant]
     Dosage: 5 MG PRN
     Dates: start: 20070119
  63. NEXIUM [Suspect]
     Route: 048
     Dates: start: 20030501, end: 20090401
  64. NEXIUM [Suspect]
     Route: 048
     Dates: start: 20030501, end: 20090401
  65. METOLAZONE [Concomitant]
  66. XANAX [Concomitant]
     Dosage: 0.5 MG 1/2 PRN
     Dates: start: 20070119
  67. LYRICA [Concomitant]
  68. LUSPIRONE HCL [Concomitant]
  69. FLUTICASONE FUROATE [Concomitant]
     Dosage: 50 MCG
  70. DIOUAN [Concomitant]
  71. ALLEGRA [Concomitant]
     Dates: start: 20110112
  72. ASPIRIN [Concomitant]
     Dates: start: 20070119
  73. DEMEDEX [Concomitant]
     Dosage: 2 PO Q AM
     Dates: start: 20060104

REACTIONS (11)
  - RENAL FAILURE CHRONIC [None]
  - TYPE 2 DIABETES MELLITUS [None]
  - ISCHAEMIC CARDIOMYOPATHY [None]
  - OSTEOPOROSIS [None]
  - CORONARY ARTERY DISEASE [None]
  - FRACTURE [None]
  - LOWER LIMB FRACTURE [None]
  - TYPE 1 DIABETES MELLITUS [None]
  - CARDIAC FAILURE CONGESTIVE [None]
  - RIB FRACTURE [None]
  - UPPER LIMB FRACTURE [None]
